FAERS Safety Report 5462905-2 (Version None)
Quarter: 2007Q3

REPORT INFORMATION
  Report Type: 
  Country: None (occurrence: None)
  Receive Date: 20070920
  Receipt Date: 20070629
  Transmission Date: 20080115
  Serious: No
  Sender: FDA-Public Use
  Company Number: US-BAUSCH-2007BL002211

PATIENT
  Age: 75 Year
  Sex: Female

DRUGS (1)
  1. NEOMYCIN AND POLYMYXIN B SULFATES AND HYDROCORTISONE OTIC SUSPENSION [Suspect]
     Indication: EAR INFECTION
     Route: 001
     Dates: start: 20070622, end: 20070626

REACTIONS (8)
  - BALANCE DISORDER [None]
  - CHILLS [None]
  - DRUG HYPERSENSITIVITY [None]
  - DYSPHONIA [None]
  - FALL [None]
  - GAIT DISTURBANCE [None]
  - MOVEMENT DISORDER [None]
  - PHARYNGOLARYNGEAL PAIN [None]
